FAERS Safety Report 20092446 (Version 1)
Quarter: 2021Q4

REPORT INFORMATION
  Report Type: Spontaneous
  Country: US (occurrence: US)
  Receive Date: 20211119
  Receipt Date: 20211119
  Transmission Date: 20220303
  Serious: No
  Sender: FDA-Public Use
  Company Number: US-INSUD PHARMA-2111US02673

PATIENT

DRUGS (3)
  1. PROGESTERONE [Suspect]
     Active Substance: PROGESTERONE
     Indication: Amenorrhoea
     Dosage: 200 MG FOR 12 DAYS CYCLICALLY EVERY MONTH
     Route: 048
     Dates: start: 2017
  2. PROGESTERONE [Suspect]
     Active Substance: PROGESTERONE
     Dosage: DOSING INTERRUPTED
     Dates: start: 202109, end: 202110
  3. VITAMINS NOS [Concomitant]
     Active Substance: VITAMINS

REACTIONS (5)
  - Gastric disorder [Not Recovered/Not Resolved]
  - Drug ineffective [Unknown]
  - Off label use [Unknown]
  - Poor quality product administered [Unknown]
  - Product colour issue [Unknown]

NARRATIVE: CASE EVENT DATE: 20210101
